FAERS Safety Report 4375206-0 (Version None)
Quarter: 2004Q2

REPORT INFORMATION
  Report Type: 
  Country: None (occurrence: None)
  Receive Date: 20040607
  Receipt Date: 20030807
  Transmission Date: 20050107
  Serious: Yes (Life-Threatening, Hospitalization)
  Sender: FDA-Public Use
  Company Number: 344379

PATIENT
  Age: 42 Year
  Sex: Female

DRUGS (3)
  1. ACCUTANE [Suspect]
     Indication: ACNE
     Dosage: 2 PER DAY ORAL
     Route: 048
     Dates: start: 20030615, end: 20030807
  2. CELEBREX [Concomitant]
  3. CELEXA [Concomitant]

REACTIONS (4)
  - ADVERSE EVENT [None]
  - DEEP VEIN THROMBOSIS [None]
  - FACTOR V INHIBITION [None]
  - THROMBOSIS [None]
